FAERS Safety Report 21563724 (Version 1)
Quarter: 2022Q4

REPORT INFORMATION
  Report Type: Spontaneous
  Country: CA (occurrence: CA)
  Receive Date: 20221108
  Receipt Date: 20221108
  Transmission Date: 20230112
  Serious: Yes (Other)
  Sender: FDA-Public Use
  Company Number: CA-JNJFOC-20221107886

PATIENT
  Age: 55 Year
  Sex: Female
  Weight: 86 kg

DRUGS (1)
  1. REMICADE [Suspect]
     Active Substance: INFLIXIMAB
     Indication: Crohn^s disease
     Route: 041

REACTIONS (9)
  - Nephrolithiasis [Unknown]
  - Acrochordon [Unknown]
  - Blood urine present [Unknown]
  - Increased tendency to bruise [Unknown]
  - Constipation [Unknown]
  - Pain [Unknown]
  - Skin papilloma [Unknown]
  - Product use issue [Unknown]
  - Off label use [Unknown]
